FAERS Safety Report 9203418 (Version 2)
Quarter: 2013Q2

REPORT INFORMATION
  Report Type: Spontaneous
  Country: US (occurrence: US)
  Receive Date: 20130402
  Receipt Date: 20130402
  Transmission Date: 20140414
  Serious: Yes (Hospitalization, Other)
  Sender: FDA-Public Use
  Company Number: US-RANBAXY-2010US-40576

PATIENT
  Age: 70 Year
  Sex: Female

DRUGS (4)
  1. ENALAPRIL MALEATE [Suspect]
     Indication: PRODUCT USED FOR UNKNOWN INDICATION
     Dosage: UNK
     Route: 065
  2. ESCITALOPRAM [Suspect]
     Indication: PRODUCT USED FOR UNKNOWN INDICATION
     Dosage: UNK
     Route: 065
  3. SIMVASTATIN/ EZETIMIBE [Suspect]
     Indication: LOW DENSITY LIPOPROTEIN INCREASED
     Dosage: 10 MG/40 MG/DAY
     Route: 065
     Dates: start: 200512, end: 20060217
  4. SIMVASTATIN/ EZETIMIBE [Suspect]
     Indication: HIGH DENSITY LIPOPROTEIN DECREASED

REACTIONS (11)
  - Acute hepatic failure [Recovered/Resolved]
  - Therapeutic response decreased [Unknown]
  - Drug interaction [Recovered/Resolved]
  - Hepatotoxicity [None]
  - Cholestasis [None]
  - Hepatic necrosis [None]
  - Portal triaditis [None]
  - Encephalopathy [None]
  - Coagulopathy [None]
  - Liver transplant [None]
  - Hepatitis [None]
